FAERS Safety Report 5508678-6 (Version None)
Quarter: 2007Q4

REPORT INFORMATION
  Report Type: 
  Country: None (occurrence: None)
  Receive Date: 20071107
  Receipt Date: 20071031
  Transmission Date: 20080405
  Serious: Yes (Death)
  Sender: FDA-Public Use
  Company Number: JP-AVENTIS-200712934JP

PATIENT
  Age: 74 Year
  Sex: Female

DRUGS (2)
  1. LASIX [Suspect]
     Route: 048
     Dates: start: 20061001, end: 20061101
  2. UNKNOWN DRUG [Suspect]

REACTIONS (3)
  - DISSEMINATED INTRAVASCULAR COAGULATION [None]
  - SEPTIC SHOCK [None]
  - TOXIC EPIDERMAL NECROLYSIS [None]
